FAERS Safety Report 7257922-6 (Version None)
Quarter: 2011Q1

REPORT INFORMATION
  Report Type: 
  Country: None (occurrence: None)
  Receive Date: 20110129
  Receipt Date: 20100609
  Transmission Date: 20110831
  Serious: No
  Sender: FDA-Public Use
  Company Number: US-ABBOTT-10P-163-0650211-00

PATIENT
  Sex: Male
  Weight: 86.26 kg

DRUGS (4)
  1. HUMIRA [Suspect]
     Indication: ANKYLOSING SPONDYLITIS
  2. SKIN PATCH [Concomitant]
     Indication: PAIN
  3. HUMIRA [Suspect]
     Indication: CROHN'S DISEASE
     Route: 058
     Dates: start: 20100201, end: 20100531
  4. AMBIEN [Concomitant]
     Indication: INSOMNIA

REACTIONS (9)
  - FATIGUE [None]
  - CHILLS [None]
  - HEADACHE [None]
  - BONE PAIN [None]
  - PAIN [None]
  - PYREXIA [None]
  - INFLUENZA LIKE ILLNESS [None]
  - SUNBURN [None]
  - PRODUCTIVE COUGH [None]
